FAERS Safety Report 6213496-X (Version None)
Quarter: 2009Q2

REPORT INFORMATION
  Report Type: 
  Country: None (occurrence: None)
  Receive Date: 20090601
  Receipt Date: 20090528
  Transmission Date: 20091009
  Serious: Yes (Hospitalization)
  Sender: FDA-Public Use
  Company Number: FR-GUERBET-20090077

PATIENT
  Age: 69 Year
  Sex: Male

DRUGS (11)
  1. HEXABRIX [Suspect]
     Indication: ARTERIOGRAM
     Dosage: UNSPECIFIED UNIT, UNSPECIFIED INTERVAL INTRAVENOUS (NOT OTHERWISE SPECIFIED)
     Route: 042
     Dates: start: 20080121, end: 20080121
  2. BRICANYL [Concomitant]
  3. TERBUTALINE SULFATE [Concomitant]
  4. ATROVENT [Concomitant]
  5. IPRATROPIUM BROMIDE [Concomitant]
  6. SPIRIVA [Concomitant]
  7. TIOTROPIUM [Concomitant]
  8. SYMBICORT [Concomitant]
  9. FORMOTEROL FUMARATE [Concomitant]
  10. PLAVIX [Concomitant]
  11. CLOPIDOGREL [Concomitant]

REACTIONS (2)
  - CONTRAST MEDIA ALLERGY [None]
  - OXYGEN SATURATION DECREASED [None]
